FAERS Safety Report 7540154-1 (Version None)
Quarter: 2011Q2

REPORT INFORMATION
  Report Type: 
  Country: None (occurrence: None)
  Receive Date: 20110610
  Receipt Date: 20110530
  Transmission Date: 20111010
  Serious: Yes (Death)
  Sender: FDA-Public Use
  Company Number: ES-CELGENEUS-144-50794-11053814

PATIENT
  Age: 72 Year
  Sex: Female

DRUGS (2)
  1. TRANSFUSIONS [Concomitant]
     Route: 051
     Dates: start: 20100901, end: 20101201
  2. VIDAZA [Suspect]
     Dosage: 100 MILLIGRAM
     Route: 050
     Dates: start: 20100901, end: 20101201

REACTIONS (1)
  - NO THERAPEUTIC RESPONSE [None]
